FAERS Safety Report 17110455 (Version 1)
Quarter: 2019Q4

REPORT INFORMATION
  Report Type: Spontaneous
  Country: ES (occurrence: ES)
  Receive Date: 20191204
  Receipt Date: 20191204
  Transmission Date: 20200122
  Serious: Yes (Other)
  Sender: FDA-Public Use
  Company Number: ES-PFIZER INC-2019521983

PATIENT
  Sex: Male

DRUGS (2)
  1. PAROXETINE/MYLAN [Suspect]
     Active Substance: PAROXETINE HYDROCHLORIDE
     Dosage: UNK
  2. ALPRAZOLAM. [Suspect]
     Active Substance: ALPRAZOLAM
     Dosage: UNK

REACTIONS (1)
  - Macular oedema [Unknown]
